FAERS Safety Report 9099805 (Version 2)
Quarter: 2014Q4

REPORT INFORMATION
  Report Type: Report from Study
  Country: DE (occurrence: DE)
  Receive Date: 20130214
  Receipt Date: 20141209
  Transmission Date: 20150529
  Serious: Yes (Hospitalization)
  Sender: FDA-Public Use
  Company Number: DE-ROCHE-1190959

PATIENT
  Age: 48 Year
  Sex: Female
  Weight: 119 kg

DRUGS (1)
  1. TOCILIZUMAB [Suspect]
     Active Substance: TOCILIZUMAB
     Indication: RHEUMATOID ARTHRITIS
     Route: 042
     Dates: start: 20120207

REACTIONS (1)
  - Biliary colic [Recovered/Resolved]

NARRATIVE: CASE EVENT DATE: 20130113
